FAERS Safety Report 19106675 (Version 1)
Quarter: 2021Q2

REPORT INFORMATION
  Report Type: Spontaneous
  Country: US (occurrence: US)
  Receive Date: 20210407
  Receipt Date: 20210407
  Transmission Date: 20210717
  Serious: Yes (Death)
  Sender: FDA-Public Use
  Company Number: None

PATIENT

DRUGS (2)
  1. BASAGLAR KWIKPEN [Concomitant]
     Active Substance: INSULIN GLARGINE
  2. BASAGLAR KWIKPEN [Suspect]
     Active Substance: INSULIN GLARGINE

REACTIONS (1)
  - Death [None]
